FAERS Safety Report 5026135-0 (Version None)
Quarter: 2006Q2

REPORT INFORMATION
  Report Type: 
  Country: None (occurrence: None)
  Receive Date: 20060612
  Receipt Date: 20060612
  Transmission Date: 20061013
  Serious: Yes (Other)
  Sender: FDA-Public Use
  Company Number: None

PATIENT
  Age: 68 Year
  Sex: Male

DRUGS (2)
  1. EFFEXOR XR [Suspect]
     Indication: ANXIETY
     Dosage: 75 MG BID PO
     Route: 048
  2. EFFEXOR XR [Suspect]
     Indication: DEPRESSION
     Dosage: 75 MG BID PO
     Route: 048

REACTIONS (2)
  - DISEASE RECURRENCE [None]
  - HYPERHIDROSIS [None]
